FAERS Safety Report 11926645 (Version 1)
Quarter: 2016Q1

REPORT INFORMATION
  Report Type: Spontaneous
  Country: US (occurrence: US)
  Receive Date: 20160119
  Receipt Date: 20160119
  Transmission Date: 20160526
  Serious: Yes (Other)
  Sender: FDA-Public Use
  Company Number: US-GLAXOSMITHKLINE-US2016JPN005668

PATIENT
  Sex: Male

DRUGS (37)
  1. SUMATRIPTAN SUCCINATE. [Suspect]
     Active Substance: SUMATRIPTAN SUCCINATE
     Indication: PRODUCT USED FOR UNKNOWN INDICATION
     Route: 058
  2. ZOLOFT [Suspect]
     Active Substance: SERTRALINE HYDROCHLORIDE
     Indication: PRODUCT USED FOR UNKNOWN INDICATION
     Route: 048
  3. RELISTOR [Suspect]
     Active Substance: METHYLNALTREXONE BROMIDE
     Indication: PRODUCT USED FOR UNKNOWN INDICATION
     Route: 058
  4. TEGRETOL [Suspect]
     Active Substance: CARBAMAZEPINE
     Indication: PRODUCT USED FOR UNKNOWN INDICATION
     Route: 065
  5. ATORVASTATIN [Suspect]
     Active Substance: ATORVASTATIN
     Indication: PRODUCT USED FOR UNKNOWN INDICATION
     Route: 048
  6. MORPHINE [Suspect]
     Active Substance: MORPHINE
     Dosage: 6.7 MG, QD
     Route: 037
     Dates: start: 20150930
  7. MORPHINE [Suspect]
     Active Substance: MORPHINE
     Dosage: UNK
     Route: 037
  8. BUPIVACAINE [Suspect]
     Active Substance: BUPIVACAINE
     Dosage: 3 MG, QD
     Route: 037
  9. BUPIVACAINE [Suspect]
     Active Substance: BUPIVACAINE
     Dosage: 3.352 MG, QD
     Route: 037
  10. SEROQUEL [Suspect]
     Active Substance: QUETIAPINE FUMARATE
     Indication: PRODUCT USED FOR UNKNOWN INDICATION
     Route: 048
  11. CLONIDINE HYDROCHLORIDE. [Suspect]
     Active Substance: CLONIDINE HYDROCHLORIDE
     Indication: PRODUCT USED FOR UNKNOWN INDICATION
     Route: 048
  12. MORPHINE [Suspect]
     Active Substance: MORPHINE
     Dosage: 6.58 MG, QD
     Route: 037
  13. LITHIUM CARBONATE. [Suspect]
     Active Substance: LITHIUM CARBONATE
     Indication: PRODUCT USED FOR UNKNOWN INDICATION
     Route: 048
  14. VALIUM [Suspect]
     Active Substance: DIAZEPAM
     Indication: PRODUCT USED FOR UNKNOWN INDICATION
     Route: 048
  15. PRAZOSIN [Suspect]
     Active Substance: PRAZOSIN
     Indication: PRODUCT USED FOR UNKNOWN INDICATION
     Route: 048
  16. LIORESAL [Suspect]
     Active Substance: BACLOFEN
     Dosage: UNK
     Route: 037
  17. CYCLOBENZAPRINE [Suspect]
     Active Substance: CYCLOBENZAPRINE
     Indication: PRODUCT USED FOR UNKNOWN INDICATION
     Route: 048
  18. MORPHINE [Suspect]
     Active Substance: MORPHINE
     Dosage: 6 MG, QD
     Route: 037
  19. TAMSULOSIN HYDROCHLORIDE. [Suspect]
     Active Substance: TAMSULOSIN HYDROCHLORIDE
     Indication: PRODUCT USED FOR UNKNOWN INDICATION
     Route: 048
  20. CARAFATE [Suspect]
     Active Substance: SUCRALFATE
     Indication: PRODUCT USED FOR UNKNOWN INDICATION
     Route: 048
  21. LIORESAL [Suspect]
     Active Substance: BACLOFEN
     Indication: PAIN
     Route: 037
     Dates: start: 20150819
  22. LIORESAL [Suspect]
     Active Substance: BACLOFEN
     Route: 037
  23. NO DRUG NAME [Suspect]
     Active Substance: UNSPECIFIED INGREDIENT
     Indication: PRODUCT USED FOR UNKNOWN INDICATION
     Route: 065
  24. BUPIVACAINE [Suspect]
     Active Substance: BUPIVACAINE
     Indication: PAIN
     Route: 037
     Dates: start: 20150819
  25. BUPIVACAINE [Suspect]
     Active Substance: BUPIVACAINE
     Dosage: 3.3 MG, QD
     Route: 037
     Dates: start: 20150930
  26. CELEBREX [Suspect]
     Active Substance: CELECOXIB
     Indication: PRODUCT USED FOR UNKNOWN INDICATION
     Route: 048
  27. MORPHINE [Suspect]
     Active Substance: MORPHINE
     Dosage: 6.7 MG, QD
     Route: 037
  28. BUPIVACAINE [Suspect]
     Active Substance: BUPIVACAINE
     Dosage: 4.2 MG, QD
     Route: 037
  29. ALLEGRA [Suspect]
     Active Substance: FEXOFENADINE HYDROCHLORIDE
     Indication: PRODUCT USED FOR UNKNOWN INDICATION
     Route: 048
  30. KETAMINE [Suspect]
     Active Substance: KETAMINE
     Indication: PRODUCT USED FOR UNKNOWN INDICATION
     Route: 065
  31. ZOFRAN [Suspect]
     Active Substance: ONDANSETRON HYDROCHLORIDE
     Indication: PRODUCT USED FOR UNKNOWN INDICATION
     Route: 048
  32. LIORESAL [Suspect]
     Active Substance: BACLOFEN
     Route: 065
     Dates: start: 20150930
  33. LIORESAL [Suspect]
     Active Substance: BACLOFEN
     Route: 037
  34. LAMICTAL [Suspect]
     Active Substance: LAMOTRIGINE
     Indication: PRODUCT USED FOR UNKNOWN INDICATION
     Route: 048
  35. OXYCODONE [Suspect]
     Active Substance: OXYCODONE
     Indication: PRODUCT USED FOR UNKNOWN INDICATION
     Route: 048
  36. MORPHINE [Suspect]
     Active Substance: MORPHINE
     Indication: PAIN
     Route: 037
     Dates: start: 20150819
  37. SYNTHROID [Suspect]
     Active Substance: LEVOTHYROXINE SODIUM
     Indication: PRODUCT USED FOR UNKNOWN INDICATION
     Route: 048

REACTIONS (46)
  - Benign prostatic hyperplasia [Unknown]
  - Migraine [Unknown]
  - Ischaemia [Unknown]
  - Gastrooesophageal reflux disease [Unknown]
  - Dyspnoea [Unknown]
  - Hypoacusis [Unknown]
  - Hypercholesterolaemia [Unknown]
  - Abdominal pain [Unknown]
  - Gastritis [Unknown]
  - Skin lesion [Unknown]
  - Asthenia [Unknown]
  - Mobility decreased [Unknown]
  - Grimacing [Unknown]
  - Hypogonadism male [Unknown]
  - Sleep apnoea syndrome [Unknown]
  - Irritable bowel syndrome [Unknown]
  - Anxiety [Unknown]
  - Decreased appetite [Unknown]
  - Discomfort [Unknown]
  - Insomnia [Unknown]
  - Back pain [Unknown]
  - Nausea [Unknown]
  - Hypoaesthesia [Unknown]
  - Sleep disorder [Unknown]
  - Myalgia [Unknown]
  - Performance status decreased [Unknown]
  - Anal incontinence [Unknown]
  - Tachyphrenia [Unknown]
  - Diverticulitis [Unknown]
  - Renal cyst [Unknown]
  - Urinary retention [Unknown]
  - Muscular weakness [Unknown]
  - Polyp [Unknown]
  - Paraplegia [Unknown]
  - Muscle tightness [Unknown]
  - Joint crepitation [Unknown]
  - Muscle spasticity [Unknown]
  - Pain [Unknown]
  - Hyperkeratosis [Unknown]
  - Hypokalaemia [Unknown]
  - Intracranial aneurysm [Unknown]
  - Psoriasis [Unknown]
  - Urinary incontinence [Unknown]
  - Movement disorder [Unknown]
  - Muscle spasms [Unknown]
  - Device infusion issue [None]
